FAERS Safety Report 17812310 (Version 3)
Quarter: 2020Q3

REPORT INFORMATION
  Report Type: Spontaneous
  Country: US (occurrence: US)
  Receive Date: 20200521
  Receipt Date: 20200717
  Transmission Date: 20201102
  Serious: No
  Sender: FDA-Public Use
  Company Number: US-PFIZER INC-2020192818

PATIENT
  Age: 8 Year
  Sex: Male

DRUGS (2)
  1. GENOTROPIN [Suspect]
     Active Substance: SOMATROPIN
     Dosage: 0.5 MG UNK
     Dates: start: 202002
  2. GENOTROPIN [Suspect]
     Active Substance: SOMATROPIN
     Dosage: 0.5 MG UNK
     Dates: start: 2019

REACTIONS (6)
  - Attention deficit hyperactivity disorder [Unknown]
  - Wrong technique in device usage process [Unknown]
  - Obsessive-compulsive disorder [Unknown]
  - Device breakage [Unknown]
  - Product dose omission issue [Unknown]
  - Post-traumatic stress disorder [Unknown]

NARRATIVE: CASE EVENT DATE: 202006
